FAERS Safety Report 18966266 (Version 2)
Quarter: 2021Q1

REPORT INFORMATION
  Report Type: Spontaneous
  Country: DE (occurrence: DE)
  Receive Date: 20210303
  Receipt Date: 20210312
  Transmission Date: 20210420
  Serious: Yes (Other)
  Sender: FDA-Public Use
  Company Number: DE-ANIPHARMA-2021-DE-000030

PATIENT
  Age: 16 Year
  Sex: Female

DRUGS (2)
  1. CANDESARTAN CILEXETIL. [Suspect]
     Active Substance: CANDESARTAN CILEXETIL
     Indication: HYPERTENSION
     Dosage: UNKNOWN DOSE AND FREQUENCY
     Route: 048
  2. SOLIRIS [Suspect]
     Active Substance: ECULIZUMAB
     Dosage: UNK / UNK / 27?OCT?2020 TO UNK / 03?NOV?2020 TO UNK / 900 MG UNK / 900 MG UNK / 900 MG UNK / 900 MG
     Route: 065

REACTIONS (4)
  - Condition aggravated [Unknown]
  - Leukopenia [Unknown]
  - Neutropenia [Unknown]
  - Oedema [Unknown]

NARRATIVE: CASE EVENT DATE: 20201109
